FAERS Safety Report 17141473 (Version 6)
Quarter: 2020Q3

REPORT INFORMATION
  Report Type: Report from Study
  Country: US (occurrence: US)
  Receive Date: 20191211
  Receipt Date: 20200831
  Transmission Date: 20201102
  Serious: Yes (Hospitalization, Other)
  Sender: FDA-Public Use
  Company Number: NVSC2019US063219

PATIENT
  Age: 52 Year
  Sex: Female

DRUGS (3)
  1. MAYZENT [Suspect]
     Active Substance: SIPONIMOD
     Indication: MULTIPLE SCLEROSIS
     Dosage: 2 MG, QD
     Route: 048
     Dates: start: 20190719
  2. MAYZENT [Suspect]
     Active Substance: SIPONIMOD
     Route: 048
  3. MAYZENT [Suspect]
     Active Substance: SIPONIMOD
     Dosage: 2 MG, QD
     Route: 048
     Dates: start: 20190731

REACTIONS (9)
  - Gait disturbance [Unknown]
  - Clostridium difficile colitis [Unknown]
  - Product supply issue [Unknown]
  - Product dose omission issue [Unknown]
  - Decubitus ulcer [Unknown]
  - Fungal skin infection [Unknown]
  - Bowel movement irregularity [Unknown]
  - Multiple sclerosis [Unknown]
  - Escherichia urinary tract infection [Unknown]

NARRATIVE: CASE EVENT DATE: 20190731
